FAERS Safety Report 9195987 (Version 1)
Quarter: 2013Q1

REPORT INFORMATION
  Report Type: Spontaneous
  Country: US (occurrence: None)
  Receive Date: 20120705
  Receipt Date: 20120705
  Transmission Date: 20140127
  Serious: Yes (Hospitalization)
  Sender: FDA-Public Use
  Company Number: US-CYPR-2012-000010

PATIENT
  Age: 65 Year
  Sex: Male
  Weight: 107 kg

DRUGS (14)
  1. CLOPIDOGREL\PLACEBO [Suspect]
     Indication: ANTIPLATELET THERAPY
     Route: 048
     Dates: start: 20110322, end: 20120202
  2. ASPIRIN [Suspect]
     Indication: CORONARY ARTERY DISEASE
     Route: 048
     Dates: start: 1999, end: 20100329
  3. METOPROLOL [Concomitant]
  4. CARVENDILOL [Concomitant]
  5. ACTOS [Concomitant]
  6. GLYBURIDE [Concomitant]
  7. PRILOSEC [Concomitant]
  8. METFORMIN [Concomitant]
  9. LIPITOR [Concomitant]
  10. SAXAGLIPTIN [Concomitant]
  11. DILTIAZEM [Concomitant]
  12. LISINOPRIL [Concomitant]
  13. HYDROCHLOROTHIAZIDE [Concomitant]
  14. CYPHER STENT [Concomitant]

REACTIONS (1)
  - Pancreatitis acute [None]
